FAERS Safety Report 6433464-2 (Version None)
Quarter: 2009Q4

REPORT INFORMATION
  Report Type: 
  Country: None (occurrence: None)
  Receive Date: 20091106
  Receipt Date: 20091106
  Transmission Date: 20100525
  Serious: Yes (Hospitalization)
  Sender: FDA-Public Use
  Company Number: None

PATIENT
  Age: 55 Year
  Sex: Female

DRUGS (5)
  1. ZOFRAN [Suspect]
     Indication: NAUSEA
     Dosage: 8MG ONE TIME IV
     Route: 042
     Dates: start: 20091031, end: 20091031
  2. NALBUPHINE [Concomitant]
  3. LABETALOL HCL [Concomitant]
  4. ATIVAN [Concomitant]
  5. HYDRALAZINE HCL [Concomitant]

REACTIONS (1)
  - DYSTONIA [None]
